FAERS Safety Report 13307305 (Version 1)
Quarter: 2017Q1

REPORT INFORMATION
  Report Type: Spontaneous
  Country: US (occurrence: US)
  Receive Date: 20170308
  Receipt Date: 20170308
  Transmission Date: 20170428
  Serious: No
  Sender: FDA-Public Use
  Company Number: US-TEVA-740264ACC

PATIENT
  Age: 33 Year
  Sex: Female
  Weight: 72.64 kg

DRUGS (2)
  1. PARAGARD T 380A [Suspect]
     Active Substance: COPPER
     Indication: CONTRACEPTION
     Dates: start: 20170104, end: 20170202
  2. PRENATAL VITAMINS [Concomitant]
     Active Substance: VITAMINS

REACTIONS (3)
  - Vaginal haemorrhage [Unknown]
  - Device expulsion [Recovered/Resolved]
  - Exposure during breast feeding [Unknown]

NARRATIVE: CASE EVENT DATE: 20170104
